FAERS Safety Report 12140002 (Version 2)
Quarter: 2016Q1

REPORT INFORMATION
  Report Type: Spontaneous
  Country: JP (occurrence: JP)
  Receive Date: 20160303
  Receipt Date: 20160315
  Transmission Date: 20160526
  Serious: Yes (Other)
  Sender: FDA-Public Use
  Company Number: JP-ASTELLAS-2016JP002921

PATIENT
  Age: 62 Year
  Sex: Female

DRUGS (4)
  1. PROTOPIC [Suspect]
     Active Substance: TACROLIMUS
     Indication: ECZEMA
     Dosage: 0.5 G, ONCE DAILY, AT NIGHT
     Route: 061
     Dates: start: 20160126, end: 20160126
  2. SHISHIHAKUHITO [Concomitant]
     Indication: PRURITUS
     Route: 048
     Dates: start: 20160126, end: 20160127
  3. LOCOID [Concomitant]
     Active Substance: HYDROCORTISONE BUTYRATE
     Indication: DERMATITIS ATOPIC
     Dosage: UNK UNK, UNKNOWN FREQ.
     Route: 065
  4. PROTOPIC [Suspect]
     Active Substance: TACROLIMUS
     Indication: DERMATITIS ATOPIC
     Dosage: UNK UNK, UNKNOWN FREQ.
     Route: 065
     Dates: start: 2003

REACTIONS (2)
  - Application site irritation [Unknown]
  - Loss of consciousness [Unknown]

NARRATIVE: CASE EVENT DATE: 2016
